FAERS Safety Report 7348877-4 (Version None)
Quarter: 2011Q1

REPORT INFORMATION
  Report Type: 
  Country: None (occurrence: None)
  Receive Date: 20110314
  Receipt Date: 20110302
  Transmission Date: 20110831
  Serious: Yes (Hospitalization)
  Sender: FDA-Public Use
  Company Number: ES-ELI_LILLY_AND_COMPANY-ES201103000849

PATIENT
  Sex: Female
  Weight: 65 kg

DRUGS (6)
  1. ENANTYUM [Concomitant]
     Indication: PAIN
     Dosage: 25 MG, EVERY 8 HRS
     Route: 048
     Dates: start: 20110121
  2. LISINOPRIL [Concomitant]
     Indication: HYPERTENSION
     Dosage: 20/12.5 MG, DAILY (1/D)
     Route: 048
  3. FORTEO [Suspect]
     Indication: OSTEOPOROSIS
     Dosage: 20 UG, DAILY (1/D)
     Route: 058
     Dates: start: 20090530, end: 20110121
  4. RIFAMPICINA [Concomitant]
     Indication: DEVICE RELATED INFECTION
     Dosage: 600 MG, DAILY (1/D)
     Route: 048
     Dates: start: 20110121
  5. OPIREN [Concomitant]
     Indication: DEVICE RELATED INFECTION
     Dosage: 30 MG, DAILY (1/D)
     Route: 048
     Dates: start: 20110121
  6. CIPROFLOXACINO [Concomitant]
     Indication: DEVICE RELATED INFECTION
     Dosage: 500 MG, EVERY 12 HOURS
     Route: 048
     Dates: start: 20110121

REACTIONS (1)
  - DEVICE RELATED INFECTION [None]
